FAERS Safety Report 4490525-5 (Version None)
Quarter: 2004Q4

REPORT INFORMATION
  Report Type: 
  Country: None (occurrence: None)
  Receive Date: 20041029
  Receipt Date: 20041009
  Transmission Date: 20050328
  Serious: No
  Sender: FDA-Public Use
  Company Number: 2004AC00588

PATIENT
  Age: 42 Year
  Sex: Female

DRUGS (2)
  1. CRESTOR [Suspect]
     Indication: HYPERCHOLESTEROLAEMIA
     Dosage: 10 MG DAILY PO
     Route: 048
     Dates: start: 20031021
  2. AMOXICILLIUM [Suspect]
     Indication: BACTERIAL INFECTION
     Dosage: 500 MG DAILY PO
     Route: 048
     Dates: start: 20031217, end: 20031220

REACTIONS (5)
  - ARTHRALGIA [None]
  - DRUG INTERACTION [None]
  - MYALGIA [None]
  - NAUSEA [None]
  - SENSITIVITY OF TEETH [None]
